FAERS Safety Report 9281881 (Version 1)
Quarter: 2013Q2

REPORT INFORMATION
  Report Type: Report from Study
  Country: FR (occurrence: FR)
  Receive Date: 20130510
  Receipt Date: 20130510
  Transmission Date: 20140414
  Serious: Yes (Hospitalization)
  Sender: FDA-Public Use
  Company Number: FR-009507513-1305FRA002536

PATIENT
  Age: 65 Year
  Sex: Female
  Weight: 65 kg

DRUGS (7)
  1. REBETOL [Suspect]
     Indication: HEPATITIS C
     Dosage: 200 MG, TID
     Route: 048
     Dates: start: 20121123
  2. PEGINTERFERON ALFA-2A [Suspect]
     Indication: HEPATITIS C
     Dosage: 180 MICROGRAM, QW
     Route: 058
     Dates: start: 20121123
  3. VICTRELIS [Suspect]
     Indication: HEPATITIS C
     Dosage: 200 MG, QID
     Route: 048
     Dates: start: 20130118
  4. OMEPRAZOLE [Concomitant]
     Indication: DUODENAL ULCER
     Dosage: 20MG DAILY
     Route: 048
     Dates: start: 20121002
  5. LEVOCETIRIZINE [Concomitant]
     Indication: PRURITUS
     Dosage: 5MG DAILY
     Route: 048
     Dates: start: 20130410, end: 20130427
  6. HYDROXYZINE HYDROCHLORIDE [Concomitant]
     Indication: PRURITUS
     Dosage: 25MG DAILY
     Route: 048
     Dates: start: 20130410, end: 20130427
  7. LEVOTHYROXINE SODIUM [Concomitant]
     Indication: HYPOTHYROIDISM
     Dosage: 12.5MG DAILY
     Route: 048
     Dates: start: 20130408

REACTIONS (1)
  - Rash [Unknown]
